FAERS Safety Report 18630870 (Version 3)
Quarter: 2021Q1

REPORT INFORMATION
  Report Type: Spontaneous
  Country: US (occurrence: US)
  Receive Date: 20201217
  Receipt Date: 20210226
  Transmission Date: 20210419
  Serious: Yes (Hospitalization)
  Sender: FDA-Public Use
  Company Number: US-ELI_LILLY_AND_COMPANY-US202012006818

PATIENT
  Sex: Female
  Weight: 111.1 kg

DRUGS (1)
  1. BAMLANIVIMAB 700MG [Suspect]
     Active Substance: BAMLANIVIMAB
     Indication: COVID-19
     Dosage: 700 MG, SINGLE
     Route: 042
     Dates: start: 20201203, end: 20201203

REACTIONS (5)
  - Pneumonitis [Recovered/Resolved]
  - Vertigo [Unknown]
  - Pulmonary oedema [Recovered/Resolved]
  - COVID-19 [Recovered/Resolved]
  - Orthostatic hypotension [Unknown]
